FAERS Safety Report 26211747 (Version 1)
Quarter: 2025Q4

REPORT INFORMATION
  Report Type: Report from Study
  Country: US (occurrence: US)
  Receive Date: 20251230
  Receipt Date: 20251230
  Transmission Date: 20260117
  Serious: Yes (Congenital Anomaly, Other)
  Sender: GILEAD
  Company Number: US-GILEAD-2025-0742371

PATIENT

DRUGS (3)
  1. LENACAPAVIR [Suspect]
     Active Substance: LENACAPAVIR
     Indication: HIV infection
     Dosage: (SUNLENCA)
     Route: 064
     Dates: start: 20251104
  2. LENACAPAVIR [Suspect]
     Active Substance: LENACAPAVIR
     Dosage: (SUNLENCA)
     Route: 064
     Dates: start: 20250506
  3. LENACAPAVIR [Suspect]
     Active Substance: LENACAPAVIR
     Dosage: 927 MG (SUNLENCA)
     Route: 064
     Dates: start: 20230528

REACTIONS (2)
  - Congenital anomaly [Unknown]
  - Foetal exposure during pregnancy [Unknown]

NARRATIVE: CASE EVENT DATE: 20250827
